FAERS Safety Report 8920966 (Version 5)
Quarter: 2013Q3

REPORT INFORMATION
  Report Type: Spontaneous
  Country: US (occurrence: US)
  Receive Date: 20121121
  Receipt Date: 20130716
  Transmission Date: 20140515
  Serious: Yes (Hospitalization, Disabling, Other)
  Sender: FDA-Public Use
  Company Number: US-PFIZER INC-2012269454

PATIENT
  Age: 29 Year
  Sex: Female
  Weight: 40.82 kg

DRUGS (2)
  1. EFFEXOR XR [Suspect]
     Indication: DEPRESSION
     Dosage: UNK
     Route: 048
     Dates: start: 2000, end: 2001
  2. EFFEXOR XR [Suspect]
     Dosage: UNK
     Route: 048
     Dates: start: 2001, end: 2003

REACTIONS (18)
  - Suicidal ideation [Unknown]
  - Abnormal behaviour [Unknown]
  - Speech disorder [Unknown]
  - Feeling abnormal [Unknown]
  - Hyperhidrosis [Unknown]
  - Weight decreased [Unknown]
  - Emotional disorder [Unknown]
  - Attention deficit/hyperactivity disorder [Unknown]
  - Weight increased [Unknown]
  - Fear [Unknown]
  - Depression [Recovered/Resolved]
  - Drug ineffective [Unknown]
  - Flashback [Unknown]
  - Insomnia [Unknown]
  - Anxiety [Unknown]
  - Social avoidant behaviour [Unknown]
  - Frustration [Unknown]
  - Anger [Unknown]
